FAERS Safety Report 9669150 (Version 2)
Quarter: 2013Q4

REPORT INFORMATION
  Report Type: Spontaneous
  Country: GB (occurrence: GB)
  Receive Date: 20131105
  Receipt Date: 20131223
  Transmission Date: 20140711
  Serious: Yes (Hospitalization)
  Sender: FDA-Public Use
  Company Number: GB-BAUSCH-BL-2013-005709

PATIENT
  Age: 79 Year
  Sex: Male
  Weight: 63 kg

DRUGS (14)
  1. DEXAMETHASONE [Suspect]
     Indication: PLASMA CELL MYELOMA
     Dosage: 20 MG
     Route: 048
     Dates: start: 20130611, end: 20130824
  2. BORTEZOMIB [Suspect]
     Indication: PLASMA CELL MYELOMA
     Dosage: 0.7 MG/M2
     Route: 058
     Dates: start: 20130611, end: 20130823
  3. ACICLOVIR [Concomitant]
     Indication: ANTIVIRAL PROPHYLAXIS
     Dates: start: 20130611
  4. CITALOPRAM [Concomitant]
     Indication: DEPRESSION
     Dates: start: 20090303
  5. CO-TRIMOXAZOLE [Concomitant]
     Indication: PROPHYLAXIS
     Dates: start: 20130612
  6. FINASTERIDE [Concomitant]
     Indication: PROSTATOMEGALY
     Dates: start: 199605
  7. GLYCERYL TRINITRATE [Concomitant]
     Indication: ANGINA PECTORIS
     Dates: start: 1997
  8. WOOL FAT/PETROLATUM/MINERAL OIL LIGHT [Concomitant]
     Indication: DRY EYE
     Dates: start: 20121221
  9. NICORANDIL [Concomitant]
     Indication: ANGINA PECTORIS
     Dates: start: 1997
  10. OMEPRAZOLE [Concomitant]
     Indication: DYSPEPSIA
     Dates: start: 20100805
  11. CLODRONATE DISODIUM [Concomitant]
     Indication: PLASMA CELL MYELOMA
     Dates: start: 20110830
  12. WARFARIN [Concomitant]
     Indication: ANTICOAGULATION DRUG LEVEL THERAPEUTIC
     Dates: start: 20041229, end: 20130812
  13. ACETYLSALICYLIC ACID [Concomitant]
  14. FLUCLOXACILLIN [Concomitant]

REACTIONS (2)
  - Fall [Recovering/Resolving]
  - Humerus fracture [Recovering/Resolving]
